FAERS Safety Report 5124258-9 (Version None)
Quarter: 2006Q3

REPORT INFORMATION
  Report Type: 
  Country: None (occurrence: None)
  Receive Date: 20060815
  Receipt Date: 20060620
  Transmission Date: 20061208
  Serious: Yes (Hospitalization)
  Sender: FDA-Public Use
  Company Number: 8011410

PATIENT
  Age: 20 Month
  Sex: Female

DRUGS (3)
  1. KEPPRA [Suspect]
     Indication: CONVULSION
     Dosage: 50 MG 2/D PO
     Route: 048
     Dates: start: 20050101, end: 20050601
  2. KEPPRA [Suspect]
     Indication: CONVULSION
     Dosage: 200 MG 2/D PO
     Route: 048
     Dates: start: 20050601
  3. LAMICTAL [Suspect]
     Indication: CONVULSION
     Dates: start: 20050101, end: 20050101

REACTIONS (4)
  - CONVULSION [None]
  - GRIP STRENGTH DECREASED [None]
  - HYPOTONIA [None]
  - VIRAL INFECTION [None]
